FAERS Safety Report 19060607 (Version 4)
Quarter: 2025Q1

REPORT INFORMATION
  Report Type: Report from Study
  Country: CN (occurrence: CN)
  Receive Date: 20210326
  Receipt Date: 20250212
  Transmission Date: 20250409
  Serious: Yes (Other)
  Sender: RANBAXY
  Company Number: CN-SUN PHARMACEUTICAL INDUSTRIES LTD-2021R1-287633

PATIENT
  Age: 51 Year
  Sex: Male

DRUGS (1)
  1. IMATINIB [Suspect]
     Active Substance: IMATINIB
     Indication: Metastasis
     Dosage: 400 MILLIGRAM, DAILY
     Route: 065
     Dates: start: 202001

REACTIONS (1)
  - Hepatitis B reactivation [Unknown]
